FAERS Safety Report 18946826 (Version 1)
Quarter: 2021Q1

REPORT INFORMATION
  Report Type: Spontaneous
  Country: US (occurrence: US)
  Receive Date: 20210226
  Receipt Date: 20210226
  Transmission Date: 20210420
  Serious: No
  Sender: FDA-Public Use
  Company Number: US-ELI_LILLY_AND_COMPANY-US202102004093

PATIENT
  Sex: Male

DRUGS (1)
  1. BAQSIMI [Suspect]
     Active Substance: GLUCAGON
     Indication: TYPE 2 DIABETES MELLITUS
     Dosage: 1 DOSAGE FORM, UNKNOWN
     Route: 065
     Dates: start: 202010

REACTIONS (1)
  - Hypoglycaemia [Not Recovered/Not Resolved]
